FAERS Safety Report 21384754 (Version 1)
Quarter: 2022Q3

REPORT INFORMATION
  Report Type: Spontaneous
  Country: US (occurrence: US)
  Receive Date: 20220928
  Receipt Date: 20220928
  Transmission Date: 20221027
  Serious: No
  Sender: FDA-Public Use
  Company Number: US-Melinta Therapeutics, LLC-US-MLNT-21-00119

PATIENT

DRUGS (1)
  1. ORBACTIV [Suspect]
     Active Substance: ORITAVANCIN
     Indication: Product used for unknown indication
     Dosage: NOT PROVIDED.
     Route: 041

REACTIONS (5)
  - Infusion related hypersensitivity reaction [Recovered/Resolved]
  - Flushing [Recovered/Resolved]
  - Infusion site irritation [Recovered/Resolved]
  - Pruritus [Recovered/Resolved]
  - Discomfort [Recovered/Resolved]
